FAERS Safety Report 6249605-6 (Version None)
Quarter: 2009Q2

REPORT INFORMATION
  Report Type: 
  Country: None (occurrence: None)
  Receive Date: 20090625
  Receipt Date: 20090618
  Transmission Date: 20091009
  Serious: Yes (Death)
  Sender: FDA-Public Use
  Company Number: 2009JP003790

PATIENT
  Age: 35 Year
  Sex: Female

DRUGS (4)
  1. PROGRAF [Suspect]
     Indication: LUNG TRANSPLANT
     Dates: start: 20060101
  2. STEROID [Concomitant]
  3. PREDNISOLONE [Concomitant]
  4. CYCLOSPORINE [Concomitant]

REACTIONS (6)
  - LUNG DISORDER [None]
  - MALAISE [None]
  - PNEUMOTHORAX [None]
  - PYREXIA [None]
  - RESTRICTIVE PULMONARY DISEASE [None]
  - TRANSPLANT REJECTION [None]
